FAERS Safety Report 9677116 (Version 1)
Quarter: 2013Q4

REPORT INFORMATION
  Report Type: Spontaneous
  Country: CH (occurrence: CH)
  Receive Date: 20131108
  Receipt Date: 20131108
  Transmission Date: 20140711
  Serious: Yes (Hospitalization)
  Sender: FDA-Public Use
  Company Number: CH-ROCHE-1298598

PATIENT
  Age: 69 Year
  Sex: Male

DRUGS (13)
  1. CELLCEPT [Suspect]
     Indication: PRODUCT USED FOR UNKNOWN INDICATION
     Route: 048
  2. PREDNISON GALEPHARM [Suspect]
     Indication: PRODUCT USED FOR UNKNOWN INDICATION
     Route: 048
  3. PREDNISON GALEPHARM [Suspect]
     Route: 065
  4. PROGRAF [Suspect]
     Indication: PRODUCT USED FOR UNKNOWN INDICATION
     Route: 048
  5. LERCANIDIPINE HYDROCHLORIDE [Suspect]
     Indication: PRODUCT USED FOR UNKNOWN INDICATION
     Route: 048
  6. NIFEDIPINE [Concomitant]
  7. ACIDUM FOLICUM [Concomitant]
     Dosage: 1 TABLET
     Route: 048
  8. ASPIRIN CARDIO [Concomitant]
     Dosage: 1 TABLET
     Route: 048
  9. CALCIUM D3 [Concomitant]
     Dosage: DOSE: 500/440 ORANGE 1 TABLET
     Route: 048
  10. CARDURA [Concomitant]
     Dosage: 2 TABLETS
     Route: 048
  11. VI-DE 3 [Concomitant]
     Dosage: DOSE : 4,500 U/ML, 100 IU/DROP 20 DROPS ORALLY.
     Route: 048
  12. ARANESP [Concomitant]
     Route: 065
  13. BELOC-ZOK [Concomitant]
     Route: 065

REACTIONS (1)
  - Eosinophilic pneumonia [Recovering/Resolving]
